FAERS Safety Report 6866520-5 (Version None)
Quarter: 2010Q2

REPORT INFORMATION
  Report Type: 
  Country: None (occurrence: None)
  Receive Date: 20100601
  Receipt Date: 20090917
  Transmission Date: 20101027
  Serious: Yes (Other)
  Sender: FDA-Public Use
  Company Number: WAES 0909USA02399

PATIENT
  Age: 83 Year
  Sex: Female

DRUGS (4)
  1. FOSAMAX PLUS D [Suspect]
     Indication: OSTEOPOROSIS
     Dosage: 70MG/5600 IU/WKY/PO
     Route: 048
     Dates: end: 20090903
  2. ALLOPURINOL [Concomitant]
  3. PROPRANOLOL HYDROCHLORIDE [Concomitant]
  4. THYROID [Concomitant]

REACTIONS (2)
  - INFECTION [None]
  - OSTEONECROSIS [None]
